FAERS Safety Report 5608561-1 (Version None)
Quarter: 2008Q1

REPORT INFORMATION
  Report Type: 
  Country: None (occurrence: None)
  Receive Date: 20080125
  Receipt Date: 20080111
  Transmission Date: 20080703
  Serious: Yes (Death)
  Sender: FDA-Public Use
  Company Number: A-CH2007-18283

PATIENT
  Age: 75 Year
  Sex: Female

DRUGS (6)
  1. TRACLEER [Suspect]
     Indication: PULMONARY HYPERTENSION
     Dosage: 125 MG, BID,; 62.5 MG, BID, ORAL
     Route: 048
     Dates: start: 20070301, end: 20070401
  2. TRACLEER [Suspect]
     Indication: PULMONARY HYPERTENSION
     Dosage: 125 MG, BID,; 62.5 MG, BID, ORAL
     Route: 048
     Dates: start: 20070401
  3. BUMETANIDE [Concomitant]
  4. CARVEDILOL [Concomitant]
  5. SPIRONOLACTONE [Concomitant]
  6. INSULIN (INSULIN) [Concomitant]

REACTIONS (1)
  - CARDIAC FAILURE ACUTE [None]
